FAERS Safety Report 16093541 (Version 4)
Quarter: 2019Q3

REPORT INFORMATION
  Report Type: Spontaneous
  Country: JP (occurrence: JP)
  Receive Date: 20190320
  Receipt Date: 20190809
  Transmission Date: 20191004
  Serious: Yes (Hospitalization, Other)
  Sender: FDA-Public Use
  Company Number: JP-009507513-1903JPN001776J

PATIENT
  Age: 61 Year
  Sex: Female
  Weight: 61 kg

DRUGS (8)
  1. PANVITAN [Concomitant]
     Active Substance: VITAMINS
     Indication: PREMEDICATION
     Dosage: 1 GRAM, QD
     Route: 048
     Dates: start: 20190215, end: 20190411
  2. CARBOPLATIN. [Suspect]
     Active Substance: CARBOPLATIN
     Dosage: 330 MILLIGRAM, Q3W
     Route: 041
     Dates: start: 20190322, end: 20190322
  3. VONOPRAZAN FUMARATE [Concomitant]
     Active Substance: VONOPRAZAN FUMURATE
     Indication: GASTRIC ULCER
     Dosage: 20 MILLIGRAM, QD
     Route: 048
     Dates: start: 20181011, end: 20190419
  4. KEYTRUDA [Suspect]
     Active Substance: PEMBROLIZUMAB
     Dosage: 200 MILLIGRAM, Q3W
     Route: 041
     Dates: start: 20190322, end: 20190322
  5. CARBOPLATIN. [Suspect]
     Active Substance: CARBOPLATIN
     Indication: NON-SMALL CELL LUNG CANCER
     Dosage: 470 MILLIGRAM, Q3W
     Route: 041
     Dates: start: 20190222, end: 20190222
  6. PEMETREXED DISODIUM [Suspect]
     Active Substance: PEMETREXED DISODIUM
     Dosage: 610 MILLIGRAM, Q3W
     Route: 041
     Dates: start: 20190322, end: 20190322
  7. KEYTRUDA [Suspect]
     Active Substance: PEMBROLIZUMAB
     Indication: NON-SMALL CELL LUNG CANCER
     Dosage: 200 MILLIGRAM, Q3W
     Route: 041
     Dates: start: 20190222, end: 20190222
  8. PEMETREXED DISODIUM [Suspect]
     Active Substance: PEMETREXED DISODIUM
     Indication: NON-SMALL CELL LUNG CANCER
     Dosage: 790 MILLIGRAM, Q3W
     Route: 041
     Dates: start: 20190222, end: 20190222

REACTIONS (5)
  - Alanine aminotransferase increased [Recovered/Resolved]
  - Blood creatine phosphokinase increased [Recovered/Resolved]
  - Steatohepatitis [Recovered/Resolved]
  - Steatohepatitis [Unknown]
  - Aspartate aminotransferase increased [Recovered/Resolved]

NARRATIVE: CASE EVENT DATE: 20190226
